FAERS Safety Report 7870102-6 (Version None)
Quarter: 2011Q4

REPORT INFORMATION
  Report Type: 
  Country: None (occurrence: None)
  Receive Date: 20111027
  Receipt Date: 20111013
  Transmission Date: 20120403
  Serious: Yes (Other)
  Sender: FDA-Public Use
  Company Number: 2011-385

PATIENT
  Age: 81 Year
  Sex: Male
  Weight: 95 kg

DRUGS (3)
  1. PRIALT [Suspect]
     Indication: INTERVERTEBRAL DISC DEGENERATION
     Dosage: 0.17 UG, ONCE/HOUR, INTRATHECAL, 0.08 UG, ONCE/HOUR, INTRATHECAL
     Route: 039
     Dates: end: 20110907
  2. PRIALT [Suspect]
     Indication: INTERVERTEBRAL DISC DEGENERATION
     Dosage: 0.17 UG, ONCE/HOUR, INTRATHECAL, 0.08 UG, ONCE/HOUR, INTRATHECAL
     Route: 039
     Dates: start: 20110907
  3. HYTRIN [Concomitant]

REACTIONS (4)
  - FUNCTIONAL GASTROINTESTINAL DISORDER [None]
  - URINARY RETENTION [None]
  - GASTROINTESTINAL MOTILITY DISORDER [None]
  - VERTIGO [None]
